FAERS Safety Report 7782946-X (Version None)
Quarter: 2011Q3

REPORT INFORMATION
  Report Type: 
  Country: None (occurrence: None)
  Receive Date: 20110928
  Receipt Date: 20110923
  Transmission Date: 20111222
  Serious: Yes (Death, Other)
  Sender: FDA-Public Use
  Company Number: GB-PFIZER INC-2011226562

PATIENT
  Age: 57 Year
  Sex: Female
  Weight: 57 kg

DRUGS (15)
  1. GEMCITABINE [Suspect]
     Indication: PANCREATIC CARCINOMA
     Dosage: 1596 MG, UNK
     Route: 042
     Dates: start: 20110729, end: 20110729
  2. GENTAMICIN [Suspect]
     Indication: NEUTROPENIC INFECTION
     Dosage: UNK
     Dates: start: 20110810
  3. FUROSEMIDE [Concomitant]
  4. IRBESARTAN [Concomitant]
  5. PIPERACILLIN AND TAZOBACTAM [Suspect]
     Indication: NEUTROPENIC INFECTION
     Dosage: 4.5 G, 4X/DAY
     Route: 042
     Dates: start: 20110810
  6. SIMVASTATIN [Concomitant]
  7. ZOPICLONE [Concomitant]
  8. BISOPROLOL [Concomitant]
  9. DOSULEPIN [Concomitant]
  10. URSODEOXYCHOLIC ACID [Concomitant]
  11. WARFARIN [Concomitant]
  12. PANTOPRAZOLE [Concomitant]
  13. DIAZEPAM [Concomitant]
  14. ISOSORBIDE MONONITRATE [Concomitant]
  15. OXYCONTIN [Concomitant]

REACTIONS (3)
  - BLISTER [None]
  - TOXIC EPIDERMAL NECROLYSIS [None]
  - RASH [None]
